FAERS Safety Report 16641148 (Version 2)
Quarter: 2019Q3

REPORT INFORMATION
  Report Type: Spontaneous
  Country: GB (occurrence: GB)
  Receive Date: 20190729
  Receipt Date: 20190809
  Transmission Date: 20191004
  Serious: Yes (Other)
  Sender: FDA-Public Use
  Company Number: GB-AUROBINDO-AUR-APL-2019-042399

PATIENT

DRUGS (2)
  1. SERTRALINE AUROBINDO [Suspect]
     Active Substance: SERTRALINE HYDROCHLORIDE
     Indication: ANXIETY
     Dosage: 50 MILLIGRAM
     Route: 048
     Dates: start: 20190621
  2. SERC [Concomitant]
     Indication: PRODUCT USED FOR UNKNOWN INDICATION
     Dosage: UNK
     Route: 065

REACTIONS (10)
  - Tremor [Recovered/Resolved]
  - Palpitations [Recovered/Resolved]
  - Nausea [Recovered/Resolved]
  - Feeling cold [Recovered/Resolved]
  - Restlessness [Recovered/Resolved]
  - Dyspepsia [Recovered/Resolved]
  - Euphoric mood [Recovered/Resolved]
  - Insomnia [Recovered/Resolved]
  - Tinnitus [Recovered/Resolved]
  - Dry mouth [Recovered/Resolved]
